FAERS Safety Report 11985016 (Version 1)
Quarter: 2016Q1

REPORT INFORMATION
  Report Type: Report from Study
  Country: US (occurrence: US)
  Receive Date: 20160201
  Receipt Date: 20160201
  Transmission Date: 20160526
  Serious: Yes (Other)
  Sender: FDA-Public Use
  Company Number: PHEH2016US002016

PATIENT
  Age: 41 Year
  Sex: Female
  Weight: 77.98 kg

DRUGS (1)
  1. GILENYA [Suspect]
     Active Substance: FINGOLIMOD HYDROCHLORIDE
     Indication: MULTIPLE SCLEROSIS
     Dosage: 0.5 MG, QD
     Route: 048
     Dates: start: 20150811

REACTIONS (10)
  - Nasal congestion [Unknown]
  - Ear pain [Unknown]
  - Wheezing [Not Recovered/Not Resolved]
  - Oropharyngeal pain [Recovering/Resolving]
  - Laryngitis [Unknown]
  - Asthenia [Unknown]
  - Pyrexia [Unknown]
  - Cough [Not Recovered/Not Resolved]
  - Influenza like illness [Unknown]
  - Asthma [Unknown]

NARRATIVE: CASE EVENT DATE: 201512
